FAERS Safety Report 8011093-7 (Version None)
Quarter: 2011Q4

REPORT INFORMATION
  Report Type: 
  Country: None (occurrence: None)
  Receive Date: 20111228
  Receipt Date: 20111214
  Transmission Date: 20120403
  Serious: Yes (Other)
  Sender: FDA-Public Use
  Company Number: CA-ROCHE-1024169

PATIENT
  Sex: Female
  Weight: 64 kg

DRUGS (11)
  1. SYMBICORT [Concomitant]
  2. REACTINE (CANADA) [Concomitant]
  3. XOLAIR [Suspect]
     Indication: ASTHMA
     Route: 058
     Dates: start: 20101017
  4. VENTOLIN [Concomitant]
  5. MAXERAN [Concomitant]
  6. ZOPICLONE [Concomitant]
  7. SPIRIVA [Concomitant]
  8. PANTOPRAZOLE SODIUM [Concomitant]
  9. SINGULAIR [Concomitant]
  10. EPIPEN [Concomitant]
  11. DICLECTIN [Concomitant]

REACTIONS (2)
  - HAEMATOMA [None]
  - MATERNAL EXPOSURE DURING PREGNANCY [None]
